FAERS Safety Report 7578317-1 (Version None)
Quarter: 2011Q2

REPORT INFORMATION
  Report Type: 
  Country: None (occurrence: None)
  Receive Date: 20110628
  Receipt Date: 20110531
  Transmission Date: 20111010
  Serious: Yes (Other)
  Sender: FDA-Public Use
  Company Number: US-BAYER-201039955NA

PATIENT
  Age: 14 Year
  Sex: Female
  Weight: 83.9 kg

DRUGS (6)
  1. FLOVENT [Concomitant]
     Dosage: 2 PUFF(S), PRN
     Route: 055
  2. ALBUTEROL SULFATE AUTOHALER [Concomitant]
     Dosage: 2 PUFF(S), PRN
     Route: 055
  3. HYOSCYAMINE [Concomitant]
     Dosage: 0.125 MG, UNK
     Route: 048
  4. LEVSIN [Concomitant]
     Dosage: UNK UNK, TID
     Route: 048
  5. YAZ [Suspect]
     Indication: ACNE
     Dosage: UNK
     Dates: start: 20060101, end: 20090101
  6. YAZ [Suspect]
     Indication: OVARIAN CYST

REACTIONS (10)
  - WEIGHT DECREASED [None]
  - ERYTHEMA [None]
  - OESOPHAGEAL DISORDER [None]
  - CHOLECYSTITIS CHRONIC [None]
  - DIARRHOEA [None]
  - PAIN [None]
  - OVARIAN CYST RUPTURED [None]
  - ABDOMINAL PAIN [None]
  - MALLORY-WEISS SYNDROME [None]
  - GALLBLADDER DISORDER [None]
